FAERS Safety Report 8050426-2 (Version None)
Quarter: 2012Q1

REPORT INFORMATION
  Report Type: 
  Country: None (occurrence: None)
  Receive Date: 20120117
  Receipt Date: 20120110
  Transmission Date: 20120608
  Serious: Yes (Hospitalization, Disabling)
  Sender: FDA-Public Use
  Company Number: DE-B.I. PHARMACEUTICALS,INC./RIDGEFIELD-2012-DE-00075DE

PATIENT
  Age: 62 Year
  Sex: Female
  Weight: 65 kg

DRUGS (6)
  1. BISOPROLOL FUMARATE [Concomitant]
     Dosage: 1.25 MG
  2. PRADAXA [Suspect]
     Dosage: 220 MG
     Route: 048
     Dates: start: 20100901, end: 20110411
  3. ENALAPRIL MALEATE [Concomitant]
     Dosage: 10 MG
  4. CITALOPRAM HYDROBROMIDE [Concomitant]
     Dosage: 20 MG
  5. BUDENOFALK [Concomitant]
     Dosage: 9 MG
  6. LEVOTHYROXINE SODIUM [Concomitant]
     Dosage: 100 MCG

REACTIONS (1)
  - MUSCULAR WEAKNESS [None]
